FAERS Safety Report 11239917 (Version 2)
Quarter: 2015Q3

REPORT INFORMATION
  Report Type: Spontaneous
  Country: US (occurrence: US)
  Receive Date: 20150706
  Receipt Date: 20150710
  Transmission Date: 20151125
  Serious: Yes (Hospitalization, Other)
  Sender: FDA-Public Use
  Company Number: US-MERCK-1506USA007616

PATIENT
  Age: 76 Year
  Sex: Male

DRUGS (1)
  1. DAPTOMYCIN. [Suspect]
     Active Substance: DAPTOMYCIN
     Indication: STAPHYLOCOCCAL INFECTION
     Dosage: 400 MG, QOD
     Route: 042
     Dates: start: 20080519, end: 20080620

REACTIONS (4)
  - Eosinophilic pneumonia [Unknown]
  - Clostridium test positive [Unknown]
  - Nephrotic syndrome [Unknown]
  - Cardiac failure congestive [Unknown]

NARRATIVE: CASE EVENT DATE: 20080721
